FAERS Safety Report 7031682-6 (Version None)
Quarter: 2010Q4

REPORT INFORMATION
  Report Type: 
  Country: None (occurrence: None)
  Receive Date: 20101004
  Receipt Date: 20100924
  Transmission Date: 20110411
  Serious: Yes (Hospitalization)
  Sender: FDA-Public Use
  Company Number: KV201000312

PATIENT
  Age: 19 Year
  Sex: Male

DRUGS (2)
  1. PREDNISOLONE [Suspect]
     Indication: T-CELL TYPE ACUTE LEUKAEMIA
     Dosage: 64 MG, QD
  2. CYCLOPHOSPHAMIDE [Suspect]
     Indication: T-CELL TYPE ACUTE LEUKAEMIA
     Dosage: 1 G, QD

REACTIONS (12)
  - ABDOMINAL PAIN [None]
  - ANURIA [None]
  - ASTHENIA [None]
  - DYSURIA [None]
  - HAEMODIALYSIS [None]
  - HYPERURICAEMIA [None]
  - PETECHIAE [None]
  - PYREXIA [None]
  - RENAL FAILURE ACUTE [None]
  - SPLEEN PALPABLE [None]
  - TUMOUR LYSIS SYNDROME [None]
  - URAEMIC ENCEPHALOPATHY [None]
